FAERS Safety Report 4685471-8 (Version None)
Quarter: 2005Q2

REPORT INFORMATION
  Report Type: 
  Country: None (occurrence: None)
  Receive Date: 20050608
  Receipt Date: 20050530
  Transmission Date: 20051028
  Serious: Yes (Other)
  Sender: FDA-Public Use
  Company Number: PHBS2005US07905

PATIENT
  Age: 54 Year
  Sex: Female

DRUGS (1)
  1. ZOLEDRONIC ACID [Suspect]
     Indication: METASTASES TO BONE
     Dosage: UNK, QMO
     Route: 042

REACTIONS (10)
  - ABSCESS ORAL [None]
  - ASEPTIC NECROSIS BONE [None]
  - BONE DISORDER [None]
  - CARBOHYDRATE ANTIGEN 125 INCREASED [None]
  - ENANTHEMA [None]
  - GINGIVAL SWELLING [None]
  - GINGIVITIS [None]
  - OVARIAN CANCER [None]
  - PAIN IN JAW [None]
  - THERAPY NON-RESPONDER [None]
